FAERS Safety Report 7535472-7 (Version None)
Quarter: 2011Q2

REPORT INFORMATION
  Report Type: 
  Country: None (occurrence: None)
  Receive Date: 20110609
  Receipt Date: 20110602
  Transmission Date: 20111010
  Serious: Yes (Other)
  Sender: FDA-Public Use
  Company Number: US-BRISTOL-MYERS SQUIBB COMPANY-15800519

PATIENT
  Age: 20 Year
  Sex: Male
  Weight: 83 kg

DRUGS (11)
  1. MOXIFLOXACIN [Concomitant]
  2. SPRYCEL [Suspect]
     Indication: ACUTE LYMPHOCYTIC LEUKAEMIA
     Dates: start: 20110422, end: 20110503
  3. NEUPOGEN [Suspect]
     Indication: ACUTE LYMPHOCYTIC LEUKAEMIA
     Dosage: LAS DOSE ON 11MAY11
     Dates: start: 20110422
  4. MESNA [Suspect]
     Indication: ACUTE LYMPHOCYTIC LEUKAEMIA
     Dosage: LAST ADMINS ON 24APR11
     Dates: start: 20110422
  5. METHOTREXATE [Suspect]
     Indication: ACUTE LYMPHOCYTIC LEUKAEMIA
     Dosage: LAST ADMNS ON 25APR11
     Dates: start: 20110422
  6. CYCLOPHOSPHAMIDE [Suspect]
     Indication: ACUTE LYMPHOCYTIC LEUKAEMIA
     Dosage: LAST ADMIN ON 25APR11
     Dates: start: 20110425
  7. DOXORUBICIN HCL [Suspect]
     Indication: ACUTE LYMPHOCYTIC LEUKAEMIA
     Dosage: LAST ADMINS ON 25APR2011
     Dates: start: 20110422
  8. FLUCONAZOLE [Concomitant]
  9. VINCRISTINE SULFATE [Suspect]
     Indication: ACUTE LYMPHOCYTIC LEUKAEMIA
     Dosage: LAST ADMIN ON 2MAY11
     Dates: start: 20110422
  10. CYTARABINE [Suspect]
     Indication: ACUTE LYMPHOCYTIC LEUKAEMIA
     Dosage: INTRP29APR11 RESTR ON 3MAY11
     Dates: start: 20110422
  11. DEXAMETHASONE [Suspect]
     Indication: ACUTE LYMPHOCYTIC LEUKAEMIA
     Dosage: LAST ADMINS ON 5MAY11
     Dates: start: 20110505

REACTIONS (1)
  - ALANINE AMINOTRANSFERASE INCREASED [None]
